FAERS Safety Report 21741306 (Version 1)
Quarter: 2022Q4

REPORT INFORMATION
  Report Type: Other
  Country: US (occurrence: US)
  Receive Date: 20221216
  Receipt Date: 20221216
  Transmission Date: 20230113
  Serious: Yes (Other)
  Sender: FDA-Public Use
  Company Number: US-Bion-010931

PATIENT
  Age: 80 Year
  Sex: Female

DRUGS (1)
  1. CALCITRIOL [Suspect]
     Active Substance: CALCITRIOL
     Indication: Blood parathyroid hormone increased

REACTIONS (1)
  - Hyperparathyroidism primary [Unknown]
